FAERS Safety Report 16525050 (Version 1)
Quarter: 2019Q3

REPORT INFORMATION
  Report Type: Report from Study
  Country: CA (occurrence: CA)
  Receive Date: 20190702
  Receipt Date: 20190702
  Transmission Date: 20191004
  Serious: Yes (Other)
  Sender: FDA-Public Use
  Company Number: CA-JNJFOC-20190509739

PATIENT
  Age: 54 Year
  Sex: Female

DRUGS (2)
  1. TREMFYA [Suspect]
     Active Substance: GUSELKUMAB
     Indication: PSORIASIS
     Dosage: STRENGTH = 100 MG
     Route: 058
     Dates: start: 20180612
  2. TREMFYA [Suspect]
     Active Substance: GUSELKUMAB
     Dosage: STRENGTH = 100 MG
     Route: 058
     Dates: start: 20190524

REACTIONS (7)
  - Bronchitis [Recovering/Resolving]
  - Off label use [Unknown]
  - Influenza [Recovering/Resolving]
  - Product use issue [Unknown]
  - Upper respiratory tract infection [Recovering/Resolving]
  - Pharyngitis [Recovering/Resolving]
  - Drug ineffective [Unknown]

NARRATIVE: CASE EVENT DATE: 201807
